APPROVED DRUG PRODUCT: TIAGABINE HYDROCHLORIDE
Active Ingredient: TIAGABINE HYDROCHLORIDE
Strength: 2MG
Dosage Form/Route: TABLET;ORAL
Application: A208181 | Product #001
Applicant: AMNEAL PHARMACEUTICALS CO GMBH
Approved: Dec 8, 2017 | RLD: No | RS: No | Type: DISCN